FAERS Safety Report 5934024-X (Version None)
Quarter: 2008Q4

REPORT INFORMATION
  Report Type: 
  Country: None (occurrence: None)
  Receive Date: 20081029
  Receipt Date: 20081023
  Transmission Date: 20090506
  Serious: Yes (Hospitalization)
  Sender: FDA-Public Use
  Company Number: JP-AMGEN-US312016

PATIENT
  Sex: Male
  Weight: 39.4 kg

DRUGS (20)
  1. PANITUMUMAB [Suspect]
     Indication: SQUAMOUS CELL CARCINOMA
     Route: 042
     Dates: start: 20080724
  2. CISPLATIN [Suspect]
     Route: 042
     Dates: start: 20080724, end: 20080724
  3. CISPLATIN [Suspect]
     Dates: start: 20080827, end: 20080918
  4. FLUOROURACIL [Suspect]
     Route: 042
     Dates: start: 20080724, end: 20080724
  5. FLUOROURACIL [Suspect]
     Route: 042
     Dates: start: 20080827, end: 20080918
  6. FENTANYL [Concomitant]
     Route: 062
     Dates: start: 20080909
  7. MORPHINE HCL ELIXIR [Concomitant]
     Route: 048
  8. ACETAMINOPHEN [Concomitant]
     Route: 048
  9. GASTER D [Concomitant]
     Route: 048
     Dates: start: 20080802
  10. AZUNOL [Concomitant]
     Route: 048
  11. CATLEP [Concomitant]
     Route: 062
     Dates: start: 20080803
  12. SODIUM CHLORIDE INJ [Concomitant]
     Route: 048
     Dates: start: 20080805
  13. DEXAMETHASONE [Concomitant]
     Route: 062
     Dates: start: 20080805
  14. MAGNESIUM SULFATE [Concomitant]
     Route: 048
     Dates: start: 20080806
  15. PROCHLORPERAZINE [Concomitant]
     Route: 048
     Dates: start: 20080806
  16. UREPEARL [Concomitant]
     Route: 062
     Dates: start: 20080831
  17. HIRUDOID [Concomitant]
     Route: 062
     Dates: start: 20080929
  18. ACUATIM [Concomitant]
     Route: 062
     Dates: start: 20080911
  19. LAXOBERON [Concomitant]
     Route: 048
     Dates: start: 20080929
  20. XYLOCAINE [Concomitant]
     Route: 062
     Dates: start: 20080929

REACTIONS (1)
  - FEBRILE NEUTROPENIA [None]
